FAERS Safety Report 6696348-0 (Version None)
Quarter: 2010Q2

REPORT INFORMATION
  Report Type: 
  Country: None (occurrence: None)
  Receive Date: 20100426
  Receipt Date: 20100416
  Transmission Date: 20101027
  Serious: Yes (Disabling)
  Sender: FDA-Public Use
  Company Number: JP-JNJFOC-20091203028

PATIENT
  Sex: Female
  Weight: 52 kg

DRUGS (19)
  1. DOXORUBICIN HCL [Suspect]
     Indication: OVARIAN CANCER RECURRENT
     Dosage: CYCLE 2
     Route: 042
     Dates: start: 20090701, end: 20090729
  2. DOXORUBICIN HCL [Suspect]
     Dosage: CYCLE 1
     Route: 042
     Dates: start: 20090701, end: 20090729
  3. WARFARIN SODIUM [Concomitant]
     Indication: PROPHYLAXIS
     Route: 048
     Dates: start: 20090813, end: 20091003
  4. WARFARIN SODIUM [Concomitant]
     Route: 048
     Dates: start: 20090813, end: 20091003
  5. METHYCOBAL [Concomitant]
     Indication: NEUROPATHY PERIPHERAL
     Route: 048
  6. LENDORMIN D [Concomitant]
     Indication: INSOMNIA
     Route: 048
  7. MAGNESIUM OXIDE [Concomitant]
     Indication: CONSTIPATION
     Route: 048
  8. LAXOBERON [Concomitant]
     Indication: CONSTIPATION
     Route: 048
  9. PRIMPERAN [Concomitant]
     Route: 048
  10. FOROCYLE S [Concomitant]
     Route: 042
  11. FILGRASTIM [Concomitant]
     Indication: NEUTROPHIL COUNT DECREASED
     Route: 058
  12. FILGRASTIM [Concomitant]
     Route: 058
  13. LOXONIN [Concomitant]
     Route: 048
  14. ADONA [Concomitant]
     Route: 048
     Dates: start: 20090803, end: 20090813
  15. PASTARON [Concomitant]
     Indication: PROPHYLAXIS
     Route: 061
  16. AZUNOL [Concomitant]
     Indication: PROPHYLAXIS
     Route: 002
     Dates: start: 20090813, end: 20090825
  17. XYLOCAINE [Concomitant]
     Indication: STOMATITIS
     Route: 002
  18. DEXALTIN [Concomitant]
     Indication: STOMATITIS
     Route: 049
     Dates: start: 20090813, end: 20090825
  19. POLAPREZINC [Concomitant]
     Indication: PROPHYLAXIS
     Route: 048

REACTIONS (1)
  - FEMALE GENITAL TRACT FISTULA [None]
